FAERS Safety Report 5044367-2 (Version None)
Quarter: 2006Q3

REPORT INFORMATION
  Report Type: 
  Country: None (occurrence: None)
  Receive Date: 20060706
  Receipt Date: 20060426
  Transmission Date: 20061208
  Serious: Yes (Disabling, Other)
  Sender: FDA-Public Use
  Company Number: PHFR2006GB01566

PATIENT
  Age: 75 Year
  Sex: Male

DRUGS (1)
  1. ZOMETA [Suspect]
     Indication: PROSTATE CANCER
     Dosage: UNK, UNK

REACTIONS (5)
  - ASTHENIA [None]
  - LETHARGY [None]
  - MALAISE [None]
  - NAUSEA [None]
  - PROSTATIC SPECIFIC ANTIGEN INCREASED [None]
